FAERS Safety Report 14935917 (Version 3)
Quarter: 2018Q2

REPORT INFORMATION
  Report Type: Spontaneous
  Country: BR (occurrence: BR)
  Receive Date: 20180524
  Receipt Date: 20180621
  Transmission Date: 20180711
  Serious: Yes (Hospitalization, Other)
  Sender: FDA-Public Use
  Company Number: BR-GLAXOSMITHKLINE-BR2018GSK091271

PATIENT
  Age: 4 Year
  Sex: Male

DRUGS (1)
  1. ZINNAT [Suspect]
     Active Substance: CEFUROXIME AXETIL
     Indication: SINUSITIS
     Dosage: 7.5 ML, BID
     Route: 048
     Dates: start: 20180515, end: 20180517

REACTIONS (4)
  - Drug prescribing error [Recovered/Resolved]
  - Hospitalisation [Recovered/Resolved]
  - Product quality issue [Unknown]
  - Overdose [Recovered/Resolved]

NARRATIVE: CASE EVENT DATE: 20180518
